FAERS Safety Report 17151359 (Version 5)
Quarter: 2020Q1

REPORT INFORMATION
  Report Type: Spontaneous
  Country: DE (occurrence: DE)
  Receive Date: 20191213
  Receipt Date: 20200213
  Transmission Date: 20200409
  Serious: Yes (Hospitalization, Other)
  Sender: FDA-Public Use
  Company Number: DE-CELGENEUS-DEU-20191204312

PATIENT
  Age: 59 Year
  Sex: Male
  Weight: 90 kg

DRUGS (12)
  1. COTRIM [Concomitant]
     Active Substance: SULFAMETHOXAZOLE\TRIMETHOPRIM
     Indication: ANTIBIOTIC THERAPY
     Dosage: 960 MILLIGRAM
     Route: 048
     Dates: start: 20191021
  2. CLEXANE [Concomitant]
     Active Substance: ENOXAPARIN SODIUM
     Indication: PROPHYLAXIS
     Dosage: 1.6 MILLILITER
     Route: 048
     Dates: start: 20191121
  3. AZACITIDINE. [Suspect]
     Active Substance: AZACITIDINE
     Indication: MYELODYSPLASTIC SYNDROME
     Dosage: 75 MILLIGRAM/SQ. METER
     Route: 058
     Dates: start: 20191021
  4. LAXOBERAL [Concomitant]
     Active Substance: SODIUM PICOSULFATE
     Indication: PROPHYLAXIS
     Route: 048
     Dates: start: 20191118
  5. VENETOCLAX. [Concomitant]
     Active Substance: VENETOCLAX
     Indication: MYELODYSPLASTIC SYNDROME
     Dosage: 400 MILLIGRAM
     Route: 048
     Dates: start: 20191021
  6. ONDANSETRON [Concomitant]
     Active Substance: ONDANSETRON
     Indication: NAUSEA
     Dosage: 4 MILLIGRAM
     Route: 048
     Dates: start: 20191021
  7. PROTORAL [Concomitant]
     Indication: ANTIBIOTIC THERAPY
     Dosage: 14 MILLILITER
     Route: 002
     Dates: start: 20190801
  8. PANTOZOL [Concomitant]
     Active Substance: PANTOPRAZOLE SODIUM
     Indication: DYSPEPSIA
     Dosage: 40 MILLIGRAM
     Route: 048
     Dates: start: 2017
  9. CITALOPRAM [Concomitant]
     Active Substance: CITALOPRAM HYDROBROMIDE
     Indication: DEPRESSION
     Dosage: 20 MILLIGRAM
     Route: 048
     Dates: start: 2017
  10. CITALOPRAM [Concomitant]
     Active Substance: CITALOPRAM HYDROBROMIDE
     Indication: HYPERTENSION
     Dosage: 1.75 MILLIGRAM
     Route: 048
     Dates: start: 2017
  11. FOLIC ACID. [Concomitant]
     Active Substance: FOLIC ACID
     Indication: PROPHYLAXIS
     Dosage: 5 MILLIGRAM
     Route: 048
     Dates: start: 20190801
  12. METOPROLOL. [Concomitant]
     Active Substance: METOPROLOL
     Indication: HYPERTENSION
     Dosage: 23.75 MILLIGRAM
     Route: 048
     Dates: start: 2017

REACTIONS (1)
  - Tooth disorder [Recovered/Resolved]

NARRATIVE: CASE EVENT DATE: 20191209
